FAERS Safety Report 4474038-2 (Version None)
Quarter: 2004Q4

REPORT INFORMATION
  Report Type: 
  Country: None (occurrence: None)
  Receive Date: 20041008
  Receipt Date: 20040913
  Transmission Date: 20050328
  Serious: No
  Sender: FDA-Public Use
  Company Number: 208973

PATIENT
  Age: 69 Year
  Sex: Male
  Weight: 51.2 kg

DRUGS (3)
  1. AVASTIN [Suspect]
     Indication: SARCOMA
     Dosage: 307 MG, Q2W, INTRAVENOUS
     Route: 042
     Dates: start: 20040525
  2. LEUCOVORIN CALCIUM [Concomitant]
  3. ELOXATIN [Concomitant]

REACTIONS (4)
  - ERYTHEMA [None]
  - FLUSHING [None]
  - INFUSION RELATED REACTION [None]
  - PRURITUS [None]
